FAERS Safety Report 8956646 (Version 1)
Quarter: 2012Q4

REPORT INFORMATION
  Report Type: 
  Country: GB (occurrence: GB)
  Receive Date: 20121210
  Receipt Date: 20121210
  Transmission Date: 20130627
  Serious: Yes (Death, Other)
  Sender: FDA-Public Use
  Company Number: GB-JNJFOC-20121202536

PATIENT

DRUGS (9)
  1. DOXORUBICIN [Suspect]
     Indication: MULTIPLE MYELOMA
     Dosage: 4 day continuous infusion, 21 day cycle
     Route: 042
  2. CYCLOPHOSPHAMIDE [Suspect]
     Indication: MULTIPLE MYELOMA
     Dosage: as 21 day cycle
     Route: 048
  3. VINCRISTINE [Suspect]
     Indication: MULTIPLE MYELOMA
     Dosage: as 21 day cycle
     Route: 065
  4. DEXAMETHASONE [Suspect]
     Indication: MULTIPLE MYELOMA
     Dosage: on days 1- 4 and 12-15
     Route: 065
  5. MELPHALAN [Suspect]
     Indication: MULTIPLE MYELOMA
     Route: 065
  6. CLODRONATE DISODIUM [Suspect]
     Indication: MULTIPLE MYELOMA
     Route: 048
  7. ZOLEDRONIC ACID [Suspect]
     Indication: MULTIPLE MYELOMA
     Dosage: every 3-4 weeks with induction and every 4 weeks therafter
     Route: 042
  8. THALIDOMIDE [Suspect]
     Indication: MULTIPLE MYELOMA
     Dosage: (50 mg/d initially, increasing to 100 mg/d if tolerated)
     Route: 065
  9. BISPHOSPHONATES [Suspect]
     Indication: MULTIPLE MYELOMA
     Route: 065

REACTIONS (7)
  - Death [Fatal]
  - Plasma cell myeloma [Unknown]
  - Renal failure acute [Unknown]
  - Osteonecrosis of jaw [Unknown]
  - Embolism [Unknown]
  - Adverse event [Unknown]
  - Infection [Unknown]
